FAERS Safety Report 9998301 (Version 1)
Quarter: 2014Q1

REPORT INFORMATION
  Report Type: Spontaneous
  Country: US (occurrence: US)
  Receive Date: 20140312
  Receipt Date: 20140312
  Transmission Date: 20141002
  Serious: Yes (Other)
  Sender: FDA-Public Use
  Company Number: US-ALVOGEN-2014AL000438

PATIENT
  Age: 56 Year
  Sex: Female

DRUGS (1)
  1. MACROBID [Suspect]
     Indication: CYSTITIS
     Route: 048
     Dates: start: 20100128, end: 20100128

REACTIONS (3)
  - Cerebrovascular accident [Recovered/Resolved]
  - Dysphonia [Recovered/Resolved]
  - Blindness [Recovered/Resolved]
